FAERS Safety Report 4785997-2 (Version None)
Quarter: 2005Q4

REPORT INFORMATION
  Report Type: 
  Country: None (occurrence: None)
  Receive Date: 20051003
  Receipt Date: 20050921
  Transmission Date: 20060501
  Serious: Yes (Hospitalization)
  Sender: FDA-Public Use
  Company Number: IT-BRISTOL-MYERS SQUIBB COMPANY-13118401

PATIENT
  Age: 92 Year
  Sex: Male

DRUGS (1)
  1. IRBESARTAN [Suspect]
     Indication: HYPERTENSION
     Dosage: 2 WEEKS 3 DAYS
     Route: 048

REACTIONS (5)
  - ABDOMINAL PAIN [None]
  - NAUSEA [None]
  - PANCREATIC ENZYMES INCREASED [None]
  - PANCREATITIS ACUTE [None]
  - VOMITING [None]
